FAERS Safety Report 4859947-4 (Version None)
Quarter: 2005Q4

REPORT INFORMATION
  Report Type: 
  Country: None (occurrence: None)
  Receive Date: 20051219
  Receipt Date: 20051209
  Transmission Date: 20060501
  Serious: Yes (Other)
  Sender: FDA-Public Use
  Company Number: CA-BRISTOL-MYERS SQUIBB COMPANY-13217849

PATIENT
  Age: 95 Year
  Sex: Male

DRUGS (13)
  1. GATIFLOXACIN [Suspect]
     Route: 048
  2. ASPIRIN [Concomitant]
  3. FLOVENT [Concomitant]
  4. GLUCOSAMINE [Concomitant]
  5. LACTULOSE [Concomitant]
  6. LASIX [Concomitant]
  7. LEVODOPA [Concomitant]
  8. LOSEC [Concomitant]
  9. METOPROLOL [Concomitant]
  10. MORPHINE [Concomitant]
  11. NITROGLYCERIN [Concomitant]
  12. RAMIPRIL [Concomitant]
  13. SERAX [Concomitant]

REACTIONS (1)
  - HYPERGLYCAEMIA [None]
